FAERS Safety Report 11626600 (Version 1)
Quarter: 2015Q4

REPORT INFORMATION
  Report Type: Report from Study
  Country: BR (occurrence: BR)
  Receive Date: 20151013
  Receipt Date: 20151013
  Transmission Date: 20160304
  Serious: Yes (Hospitalization)
  Sender: FDA-Public Use
  Company Number: BR-BAYER-2015-436183

PATIENT
  Sex: Female

DRUGS (1)
  1. BETAFERON [Suspect]
     Active Substance: INTERFERON BETA-1B
     Indication: AUTOIMMUNE DISORDER
     Dosage: UNK
     Route: 058
     Dates: start: 20130717, end: 201502

REACTIONS (1)
  - Abasia [Recovering/Resolving]

NARRATIVE: CASE EVENT DATE: 2014
